FAERS Safety Report 15921000 (Version 3)
Quarter: 2019Q1

REPORT INFORMATION
  Report Type: Spontaneous
  Country: US (occurrence: US)
  Receive Date: 20190205
  Receipt Date: 20190330
  Transmission Date: 20190417
  Serious: No
  Sender: FDA-Public Use
  Company Number: PHEH2019US005300

PATIENT
  Sex: Male

DRUGS (3)
  1. LENVIMA [Suspect]
     Active Substance: LENVATINIB
     Indication: RENAL CANCER
     Dosage: 18 MG, QD
     Route: 048
     Dates: start: 201810
  2. AFINITOR [Suspect]
     Active Substance: EVEROLIMUS
     Indication: RENAL CANCER
     Dosage: 5 MG, QD
     Route: 048
     Dates: start: 201810
  3. AFINITOR [Suspect]
     Active Substance: EVEROLIMUS
     Dosage: 18 MG, QD
     Route: 048

REACTIONS (16)
  - Sleep disorder [Recovering/Resolving]
  - Weight decreased [Recovering/Resolving]
  - Headache [Unknown]
  - Feeling cold [Recovering/Resolving]
  - Rash pruritic [Recovering/Resolving]
  - Dizziness [Unknown]
  - Pain [Unknown]
  - Rash [Unknown]
  - Decreased appetite [Unknown]
  - Urticaria [Unknown]
  - Constipation [Unknown]
  - Pruritus [Unknown]
  - Oral mucosal blistering [Unknown]
  - Back pain [Unknown]
  - Dysgeusia [Unknown]
  - Hypersensitivity [Unknown]

NARRATIVE: CASE EVENT DATE: 2018
